FAERS Safety Report 10978168 (Version 2)
Quarter: 2015Q2

REPORT INFORMATION
  Report Type: Spontaneous
  Country: BR (occurrence: BR)
  Receive Date: 20150402
  Receipt Date: 20150514
  Transmission Date: 20150821
  Serious: Yes (Other)
  Sender: FDA-Public Use
  Company Number: BR-GE HEALTHCARE MEDICAL DIAGNOSTICS-OMPQ-PR-1503S-0279

PATIENT
  Age: 46 Year
  Sex: Female
  Weight: 59.3 kg

DRUGS (3)
  1. OMNIPAQUE [Suspect]
     Active Substance: IOHEXOL
     Indication: DIAGNOSTIC PROCEDURE
  2. OMNIPAQUE [Suspect]
     Active Substance: IOHEXOL
     Indication: CHROMATURIA
  3. OMNIPAQUE [Suspect]
     Active Substance: IOHEXOL
     Indication: CALCULUS URINARY
     Dosage: DOSE NOT REPORTED
     Route: 042
     Dates: start: 20150323, end: 20150323

REACTIONS (3)
  - Throat irritation [Recovered/Resolved]
  - Laryngeal oedema [Recovered/Resolved]
  - Cough [Recovered/Resolved]

NARRATIVE: CASE EVENT DATE: 20150323
